FAERS Safety Report 8848756 (Version 4)
Quarter: 2013Q3

REPORT INFORMATION
  Report Type: Spontaneous
  Country: US (occurrence: US)
  Receive Date: 20121018
  Receipt Date: 20130924
  Transmission Date: 20140515
  Serious: Yes (Hospitalization, Disabling, Other)
  Sender: FDA-Public Use
  Company Number: US-009507513-1210USA003950

PATIENT
  Sex: Female
  Weight: 79.37 kg

DRUGS (14)
  1. FOSAMAX [Suspect]
     Indication: OSTEOPENIA
     Dosage: 70 MG, UNK
     Route: 048
     Dates: start: 200409, end: 200802
  2. ALENDRONATE SODIUM [Suspect]
     Indication: OSTEOPENIA
     Dosage: 70 MG, UNK
     Route: 048
     Dates: start: 200802, end: 201009
  3. CALCIUM (UNSPECIFIED) [Concomitant]
     Dosage: 600 MG, BID
     Dates: start: 2000, end: 2010
  4. MAGNESIUM (UNSPECIFIED) [Concomitant]
     Dosage: 400 MG, QD
     Dates: start: 2008
  5. CORTICOSTEROIDS (UNSPECIFIED) [Concomitant]
     Dosage: UNK
     Dates: start: 200604, end: 201009
  6. LIPTOR [Concomitant]
     Indication: HYPERLIPIDAEMIA
     Dosage: UNK
     Dates: start: 200203, end: 200804
  7. ATENOLOL [Concomitant]
     Indication: HYPERTENSION
     Dosage: UNK
     Dates: start: 200107, end: 200805
  8. NASONEX [Concomitant]
     Indication: SEASONAL ALLERGY
     Dosage: UNK
     Dates: start: 200607, end: 200611
  9. FLONASE [Concomitant]
     Indication: SEASONAL ALLERGY
     Dosage: 2 DF, QD
     Dates: start: 200803
  10. ULTRAM [Concomitant]
     Indication: OSTEOARTHRITIS
     Dosage: 200 MG, QD
     Dates: start: 200608
  11. VITAMIN D (UNSPECIFIED) [Concomitant]
     Dosage: 2000 MG, UNK
     Dates: start: 2010
  12. TYLENOL EXTRA STRENGTH [Concomitant]
     Indication: NEUROPATHY PERIPHERAL
  13. NEURONTIN [Concomitant]
     Indication: NEUROPATHY PERIPHERAL
     Dosage: 300 MG, BID
  14. NEURONTIN [Concomitant]
     Dosage: 300 MG, TID

REACTIONS (59)
  - Femur fracture [Not Recovered/Not Resolved]
  - Femur fracture [Unknown]
  - Intramedullary rod insertion [Unknown]
  - Intramedullary rod insertion [Unknown]
  - Low turnover osteopathy [Not Recovered/Not Resolved]
  - Femur fracture [Not Recovered/Not Resolved]
  - Hip fracture [Not Recovered/Not Resolved]
  - Osteoporosis [Not Recovered/Not Resolved]
  - Abdominal adhesions [Unknown]
  - Incisional hernia repair [Unknown]
  - Surgery [Unknown]
  - Foot operation [Unknown]
  - Spinal laminectomy [Unknown]
  - Small intestinal resection [Unknown]
  - Intestinal adhesion lysis [Unknown]
  - Spinal fusion surgery [Unknown]
  - Spinal operation [Unknown]
  - Rotator cuff repair [Unknown]
  - Chest pain [Unknown]
  - Wound infection [Unknown]
  - Type 2 diabetes mellitus [Unknown]
  - Neuropathic arthropathy [Unknown]
  - Injury [Unknown]
  - Fall [Unknown]
  - Intestinal obstruction [Unknown]
  - Vitamin D deficiency [Unknown]
  - Rotator cuff syndrome [Unknown]
  - Blood triglycerides increased [Unknown]
  - Intestinal obstruction [Unknown]
  - Abdominal hernia [Unknown]
  - Intestinal adhesion lysis [Unknown]
  - Abscess drainage [Unknown]
  - Ankle operation [Unknown]
  - Toe operation [Unknown]
  - Debridement [Unknown]
  - Toe operation [Unknown]
  - Vaginal operation [Unknown]
  - Limb injury [Unknown]
  - Toe operation [Unknown]
  - Limb operation [Unknown]
  - Localised infection [Unknown]
  - Wound dehiscence [Unknown]
  - Lumbar radiculopathy [Unknown]
  - Spinal osteoarthritis [Unknown]
  - Intervertebral disc displacement [Unknown]
  - Appendicectomy [Unknown]
  - Bursitis [Unknown]
  - Asthma [Unknown]
  - Vitamin B12 deficiency [Unknown]
  - Intervertebral disc protrusion [Unknown]
  - Pain in extremity [Unknown]
  - Vertebral foraminal stenosis [Unknown]
  - Ankle operation [Unknown]
  - Diverticulum [Unknown]
  - Sleep apnoea syndrome [Unknown]
  - Joint swelling [Unknown]
  - Back pain [Not Recovered/Not Resolved]
  - Gastrooesophageal reflux disease [Unknown]
  - Pain in extremity [Unknown]
